FAERS Safety Report 9391477 (Version 3)
Quarter: 2013Q4

REPORT INFORMATION
  Report Type: Report from Study
  Country: IT (occurrence: IT)
  Receive Date: 20130709
  Receipt Date: 20131009
  Transmission Date: 20140711
  Serious: Yes (Life-Threatening, Hospitalization)
  Sender: FDA-Public Use
  Company Number: IT-GLAXOSMITHKLINE-B0906074A

PATIENT
  Age: 66 Year
  Sex: Female
  Weight: 70 kg

DRUGS (5)
  1. OFATUMUMAB [Suspect]
     Indication: MANTLE CELL LYMPHOMA
     Route: 042
     Dates: start: 20110131
  2. BENDAMUSTINE [Suspect]
     Indication: MANTLE CELL LYMPHOMA
     Route: 042
     Dates: start: 20110131
  3. DIFLUCAN [Concomitant]
     Dates: start: 20110217
  4. BACTRIM [Concomitant]
     Dates: start: 20110217
  5. ACICLOVIR [Concomitant]
     Dates: start: 20110217

REACTIONS (1)
  - Pneumonia [Recovered/Resolved]
